FAERS Safety Report 5309366-1 (Version None)
Quarter: 2007Q2

REPORT INFORMATION
  Report Type: 
  Country: None (occurrence: None)
  Receive Date: 20070425
  Receipt Date: 20070425
  Transmission Date: 20071010
  Serious: Yes (Hospitalization)
  Sender: FDA-Public Use
  Company Number: None

PATIENT
  Age: 68 Year
  Sex: Female

DRUGS (2)
  1. EXCEDRIN [Suspect]
     Indication: HEADACHE
     Dosage: 2 PILLS DAILY
  2. ASPIRIN [Concomitant]

REACTIONS (5)
  - MELAENA [None]
  - NAUSEA [None]
  - SYNCOPE [None]
  - VOMITING [None]
  - WEIGHT DECREASED [None]
